FAERS Safety Report 7194426-3 (Version None)
Quarter: 2010Q4

REPORT INFORMATION
  Report Type: 
  Country: None (occurrence: None)
  Receive Date: 20101223
  Receipt Date: 20101213
  Transmission Date: 20110411
  Serious: Yes (Other)
  Sender: FDA-Public Use
  Company Number: FR-SANOFI-AVENTIS-200319809GDDC

PATIENT
  Age: 37 Year
  Sex: Male

DRUGS (2)
  1. RIFAMPICIN [Suspect]
     Indication: TUBERCULOSIS
     Dosage: DOSE AS USED: UNK
  2. ISONIAZID [Suspect]
     Indication: TUBERCULOSIS

REACTIONS (4)
  - HEPATORENAL FAILURE [None]
  - OLIGURIA [None]
  - TYPE III IMMUNE COMPLEX MEDIATED REACTION [None]
  - VOMITING [None]
